FAERS Safety Report 7597539-7 (Version None)
Quarter: 2011Q3

REPORT INFORMATION
  Report Type: 
  Country: None (occurrence: None)
  Receive Date: 20110708
  Receipt Date: 20110630
  Transmission Date: 20111222
  Serious: Yes (Disabling, Other)
  Sender: FDA-Public Use
  Company Number: PHHY2011US26467

PATIENT
  Sex: Female
  Weight: 85.261 kg

DRUGS (8)
  1. FLUOXETINE [Concomitant]
     Indication: DEPRESSION
     Dosage: 60 MG, QD
     Route: 048
  2. GILENYA [Suspect]
     Indication: MULTIPLE SCLEROSIS
     Dosage: 0.5 MG, QD
     Route: 048
     Dates: start: 20110301
  3. ALPRAZOLAM [Concomitant]
     Indication: ANXIETY
     Dosage: 0.5 MG, PRN
     Route: 048
  4. PROZAC [Concomitant]
     Dosage: 60 MG DAILY
  5. MULTI-VITAMINS [Concomitant]
     Indication: MULTI-VITAMIN DEFICIENCY
     Route: 048
  6. ATENOLOL [Concomitant]
     Indication: HYPERTENSION
     Dosage: 25 MG, QD
     Route: 048
  7. LEVOTHYROXINE SODIUM [Concomitant]
     Indication: THYROID DISORDER
     Dosage: 0.5 MG, QD
     Route: 048
  8. CALCIUM WITH VITAMIN D [Concomitant]
     Indication: CALCIUM DEFICIENCY
     Dosage: 1000 IU, UNK
     Route: 048

REACTIONS (7)
  - INCREASED BRONCHIAL SECRETION [None]
  - COUGH [None]
  - WHITE BLOOD CELL COUNT DECREASED [None]
  - EYE INFECTION [None]
  - FATIGUE [None]
  - DEPRESSION [None]
  - BRONCHITIS [None]
